FAERS Safety Report 14379781 (Version 8)
Quarter: 2018Q4

REPORT INFORMATION
  Report Type: Spontaneous
  Country: CZ (occurrence: CZ)
  Receive Date: 20180112
  Receipt Date: 20180806
  Transmission Date: 20190204
  Serious: Yes (Life-Threatening, Hospitalization, Disabling, Other)
  Sender: FDA-Public Use
  Company Number: CZ-MYLANLABS-2018M1002522

PATIENT
  Age: 51 Year
  Sex: Female

DRUGS (35)
  1. PAROXETINE. [Interacting]
     Active Substance: PAROXETINE
     Indication: MENTAL DISORDER
  2. MELOXICAM. [Interacting]
     Active Substance: MELOXICAM
     Indication: PAIN
  3. PAROXETINE. [Interacting]
     Active Substance: PAROXETINE
     Indication: PSYCHIATRIC SYMPTOM
     Dosage: 60 MG, QD
     Route: 048
  4. PARACETAMOL/TRAMADOL [Interacting]
     Active Substance: ACETAMINOPHEN\TRAMADOL
     Indication: PRODUCT USED FOR UNKNOWN INDICATION
     Dosage: UNK
     Route: 065
  5. MIDAZOLAM [Interacting]
     Active Substance: MIDAZOLAM HYDROCHLORIDE
     Indication: SEDATION
  6. CHLORPROTHIXENE HYDROCHLORIDE [Interacting]
     Active Substance: CHLORPROTHIXENE HYDROCHLORIDE
     Indication: MENTAL DISORDER
  7. BROMAZEPAM [Concomitant]
     Active Substance: BROMAZEPAM
     Indication: MENTAL DISORDER
  8. HYDROXYZINE [Interacting]
     Active Substance: HYDROXYZINE HYDROCHLORIDE
     Indication: PRODUCT USED FOR UNKNOWN INDICATION
     Dosage: UNK
  9. METOCLOPRAMIDE. [Interacting]
     Active Substance: METOCLOPRAMIDE
     Indication: PRODUCT USED FOR UNKNOWN INDICATION
     Dosage: UNK
     Route: 065
  10. ESMOLOL [Concomitant]
     Active Substance: ESMOLOL HYDROCHLORIDE
     Indication: PRODUCT USED FOR UNKNOWN INDICATION
     Dosage: UNK
  11. TRAZODONE [Suspect]
     Active Substance: TRAZODONE HYDROCHLORIDE
     Indication: PSYCHIATRIC SYMPTOM
     Dosage: 300 MG, QD
     Route: 065
  12. TRAZODONE [Suspect]
     Active Substance: TRAZODONE HYDROCHLORIDE
     Indication: MENTAL DISORDER
  13. TRAMADOL. [Interacting]
     Active Substance: TRAMADOL
     Indication: PAIN
     Dosage: UNK
     Route: 048
  14. MELOXICAM. [Interacting]
     Active Substance: MELOXICAM
     Indication: ANALGESIC THERAPY
     Dosage: UNK
     Route: 048
  15. NOREPINEPHRINE. [Concomitant]
     Active Substance: NOREPINEPHRINE
     Indication: PRODUCT USED FOR UNKNOWN INDICATION
     Dosage: UNK
  16. INDOMETACIN [Interacting]
     Active Substance: INDOMETHACIN
     Indication: PAIN
     Dosage: UNK
     Route: 065
  17. HYDROCORTISONE/PRAMOCAINE [Interacting]
     Active Substance: HYDROCORTISONE\PRAMOXINE
     Indication: PRODUCT USED FOR UNKNOWN INDICATION
     Dosage: UNK
  18. TRAMADOL. [Interacting]
     Active Substance: TRAMADOL
     Indication: ANALGESIC THERAPY
     Dosage: 50 MG, UNK
     Route: 065
  19. INDOMETACIN [Interacting]
     Active Substance: INDOMETHACIN
     Indication: ANALGESIC THERAPY
  20. CODEINE PHOSPHATE HYDRATE [Interacting]
     Active Substance: CODEINE PHOSPHATE
     Indication: PAIN
     Dosage: UNK
     Route: 048
  21. PARACETAMOL [Interacting]
     Active Substance: ACETAMINOPHEN
     Indication: PRODUCT USED FOR UNKNOWN INDICATION
     Dosage: UNK
     Route: 065
  22. VORICONAZOLE. [Concomitant]
     Active Substance: VORICONAZOLE
     Indication: CANDIDA INFECTION
  23. NACL [Concomitant]
     Active Substance: SODIUM CHLORIDE
     Indication: BRAIN OEDEMA
     Dosage: UNK
     Route: 065
  24. LEVOFLOXACIN. [Interacting]
     Active Substance: LEVOFLOXACIN
     Indication: ANTIBIOTIC THERAPY
     Dosage: UNK
     Route: 065
  25. MIDAZOLAM [Interacting]
     Active Substance: MIDAZOLAM HYDROCHLORIDE
     Indication: MYOCLONUS
     Dosage: 15 MG, QH
     Route: 065
  26. CHLORPROTHIXENE HYDROCHLORIDE [Interacting]
     Active Substance: CHLORPROTHIXENE HYDROCHLORIDE
     Indication: PSYCHIATRIC SYMPTOM
     Dosage: 50 MG, QD
     Route: 065
  27. SUFENTANIL [Interacting]
     Active Substance: SUFENTANIL
     Indication: SEDATION
     Dosage: 10 ?G, QH
     Route: 065
  28. ACETAMINOPHEN. [Suspect]
     Active Substance: ACETAMINOPHEN
     Indication: PYREXIA
     Dosage: 4 G, QD
     Route: 065
  29. CISATRACURIUM. [Concomitant]
     Active Substance: CISATRACURIUM
     Indication: PRODUCT USED FOR UNKNOWN INDICATION
     Dosage: 20 MG, UNK
  30. BUDESONIDE W/FORMOTEROL FUMARATE [Concomitant]
     Active Substance: BUDESONIDE\FORMOTEROL FUMARATE
     Indication: ASTHMA
     Dosage: 160/4.5 MG
     Route: 055
  31. NOREPINEPHRINE. [Concomitant]
     Active Substance: NOREPINEPHRINE
     Indication: PRODUCT USED FOR UNKNOWN INDICATION
  32. PIPERACILLIN/TAZOBACTAM [Concomitant]
     Active Substance: PIPERACILLIN SODIUM\TAZOBACTAM SODIUM
     Indication: ANTIBIOTIC THERAPY
     Dosage: UNK
     Route: 065
  33. VORICONAZOLE. [Concomitant]
     Active Substance: VORICONAZOLE
     Indication: PNEUMONIA
     Dosage: UNK
  34. IVABRADINE [Concomitant]
     Active Substance: IVABRADINE
     Indication: SINUS TACHYCARDIA
     Dosage: 10 MG, QD
     Route: 065
  35. BROMAZEPAM [Concomitant]
     Active Substance: BROMAZEPAM
     Indication: PSYCHIATRIC SYMPTOM
     Dosage: 2 MG, QD
     Route: 048

REACTIONS (28)
  - Serotonin syndrome [Not Recovered/Not Resolved]
  - Hypertension [Unknown]
  - Sinus tachycardia [Unknown]
  - Muscle spasms [Unknown]
  - Agitation [Unknown]
  - Intentional product use issue [Not Recovered/Not Resolved]
  - Oliguria [Unknown]
  - Restlessness [Unknown]
  - Dyspnoea [Unknown]
  - Arthralgia [Unknown]
  - Mydriasis [Unknown]
  - Leukocytosis [Unknown]
  - Drug ineffective [Unknown]
  - Apallic syndrome [Not Recovered/Not Resolved]
  - Circulatory collapse [Unknown]
  - Pyrexia [Unknown]
  - Myoglobin blood increased [Unknown]
  - Tachycardia [Unknown]
  - Depressed level of consciousness [Unknown]
  - Pneumonia [Unknown]
  - Hyperhidrosis [Unknown]
  - Drug interaction [Unknown]
  - Rhabdomyolysis [Recovering/Resolving]
  - Metabolic acidosis [Unknown]
  - Pneumonia fungal [Unknown]
  - Tremor [Unknown]
  - Myoclonus [Unknown]
  - Delirium [Unknown]
